FAERS Safety Report 22228592 (Version 1)
Quarter: 2023Q2

REPORT INFORMATION
  Report Type: Spontaneous
  Country: US (occurrence: None)
  Receive Date: 20230418
  Receipt Date: 20230418
  Transmission Date: 20230722
  Serious: No
  Sender: FDA-Public Use
  Company Number: None

PATIENT
  Age: 2 Year
  Sex: Male
  Weight: 17.55 kg

DRUGS (5)
  1. MONTELUKAST [Suspect]
     Active Substance: MONTELUKAST SODIUM
     Indication: Asthma
     Dosage: 1 CAPSULE AT BEDTIME ORAL
     Route: 048
     Dates: start: 20221011, end: 20230411
  2. MONTELUKAST [Suspect]
     Active Substance: MONTELUKAST SODIUM
     Indication: Hypersensitivity
  3. FLOVENT [Concomitant]
     Active Substance: FLUTICASONE PROPIONATE
  4. FLONASE [Concomitant]
     Active Substance: FLUTICASONE PROPIONATE
  5. CULTURELLE [Concomitant]
     Active Substance: LACTOBACILLUS RHAMNOSUS

REACTIONS (5)
  - Therapy cessation [None]
  - Aggression [None]
  - Aggression [None]
  - Frustration tolerance decreased [None]
  - Mood swings [None]

NARRATIVE: CASE EVENT DATE: 20230417
